FAERS Safety Report 10637820 (Version 1)
Quarter: 2014Q4

REPORT INFORMATION
  Report Type: Spontaneous
  Country: US (occurrence: None)
  Receive Date: 20141204
  Receipt Date: 20141204
  Transmission Date: 20150529
  Serious: Yes (Other)
  Sender: FDA-Public Use
  Company Number: None

PATIENT
  Age: 84 Year
  Sex: Male

DRUGS (10)
  1. TIOTROPILIN [Concomitant]
  2. WARFARIN [Concomitant]
     Active Substance: WARFARIN
  3. KCL [Concomitant]
     Active Substance: POTASSIUM CHLORIDE
  4. AATOVASTATIN [Concomitant]
  5. ALENDRONATE [Concomitant]
     Active Substance: ALENDRONATE SODIUM
  6. FUROSEMIDE. [Concomitant]
     Active Substance: FUROSEMIDE
  7. ADEMPAS [Suspect]
     Active Substance: RIOCIGUAT
     Indication: COR PULMONALE CHRONIC
     Route: 048
     Dates: start: 201409
  8. DILTIAZEM [Concomitant]
     Active Substance: DILTIAZEM
  9. SENNA [Concomitant]
     Active Substance: SENNA LEAF\SENNOSIDES\SENNOSIDES A AND B
  10. CHOLECALCIFEROL [Concomitant]
     Active Substance: CHOLECALCIFEROL

REACTIONS (4)
  - Fluid retention [None]
  - Dyspnoea exertional [None]
  - Constipation [None]
  - Peripheral swelling [None]

NARRATIVE: CASE EVENT DATE: 20141022
